FAERS Safety Report 9027743 (Version 4)
Quarter: 2013Q2

REPORT INFORMATION
  Report Type: Report from Study
  Country: US (occurrence: US)
  Receive Date: 20130123
  Receipt Date: 20130412
  Transmission Date: 20140414
  Serious: Yes (Hospitalization)
  Sender: FDA-Public Use
  Company Number: US-JNJFOC-20130110734

PATIENT
  Age: 65 Year
  Sex: Female
  Weight: 60.78 kg

DRUGS (36)
  1. REMICADE [Suspect]
     Indication: RHEUMATOID ARTHRITIS
     Route: 042
     Dates: start: 20121106
  2. REMICADE [Suspect]
     Indication: RHEUMATOID ARTHRITIS
     Dosage: 1ST INFUSION
     Route: 042
  3. REMICADE [Suspect]
     Indication: RHEUMATOID ARTHRITIS
     Route: 042
     Dates: start: 20121121, end: 20121121
  4. ZOLPIDEM [Concomitant]
     Indication: SLEEP DISORDER THERAPY
     Route: 065
  5. FOLIC ACID [Concomitant]
     Indication: STOMATITIS
     Route: 048
     Dates: start: 2012
  6. EVOXAC [Concomitant]
     Indication: DRY MOUTH
     Route: 048
     Dates: start: 2009
  7. METHOTREXATE [Concomitant]
     Indication: DERMATOMYOSITIS
     Route: 048
  8. SYNTHROID [Concomitant]
     Indication: THYROID DISORDER
     Dosage: 75MCG
     Route: 048
  9. FOSAMAX [Concomitant]
     Indication: OSTEOPOROSIS
     Route: 048
  10. FOSAMAX [Concomitant]
     Indication: SPINAL DISORDER
     Route: 048
  11. ZOCOR [Concomitant]
     Indication: BLOOD CHOLESTEROL
     Route: 048
  12. CELEBREX [Concomitant]
     Indication: ARTHRITIS
     Route: 048
  13. HYDROXYZINE HCL [Concomitant]
     Indication: PRURITUS
     Dosage: ONCE EVERY 4 - 6 HOURS
     Route: 048
     Dates: start: 2008
  14. GABAPENTIN [Concomitant]
     Indication: BACK PAIN
     Route: 048
     Dates: start: 2010
  15. GABAPENTIN [Concomitant]
     Indication: BURNING MOUTH SYNDROME
     Route: 048
     Dates: start: 2010
  16. AMBIEN [Concomitant]
     Indication: SLEEP DISORDER
     Dosage: AT BEDTIME
     Route: 048
     Dates: start: 2008
  17. ALIGN NOS [Concomitant]
     Indication: IRRITABLE BOWEL SYNDROME
     Route: 048
     Dates: start: 2007
  18. HYOMAX [Concomitant]
     Indication: IRRITABLE BOWEL SYNDROME
     Dosage: IC HYOMAX-SR  ,  0.75MG/TABLET/0.375/TWO TABLETS TWICE A DAY/ORAL
     Route: 048
  19. HUMIRA [Concomitant]
     Indication: ARTHRITIS
     Dosage: DOSEE 40MG/0.8 ML, TAKEN OVER 2 MONTHS
  20. ROPINIROLE [Concomitant]
     Indication: MUSCLE SPASMS
  21. NORTRIPTYLIN [Concomitant]
  22. DEXILANT [Concomitant]
     Indication: GASTROOESOPHAGEAL REFLUX DISEASE
     Dosage: OVER 3 MONTHS
  23. MULTIVITAMINS [Concomitant]
     Dosage: THERALITH XR
  24. FISH OIL [Concomitant]
     Dosage: DOSE: 90 GUMMIES
  25. CALCIUM AND VITAMIN D [Concomitant]
  26. VITAMIN [Concomitant]
  27. VITAMIN [Concomitant]
     Dosage: DOSE: 90 GUMMIES
  28. VITAMIN C [Concomitant]
  29. SYSTANE [Concomitant]
  30. CYMBALTA [Concomitant]
     Route: 065
  31. TRAMADOL [Concomitant]
     Route: 065
  32. SYNTHROID [Concomitant]
     Route: 065
  33. ZYRTEC [Concomitant]
     Indication: PREMEDICATION
     Route: 048
     Dates: start: 20121106
  34. ALL OTHER THERAPEUTICS [Concomitant]
     Route: 065
  35. LEVOTHYROXINE [Concomitant]
     Indication: HYPOTHYROIDISM
     Route: 065
  36. NIFEDIPINE [Concomitant]
     Route: 065

REACTIONS (6)
  - Dyspnoea [Recovered/Resolved]
  - Chest pain [Recovered/Resolved]
  - Musculoskeletal pain [Recovered/Resolved]
  - Infusion related reaction [Recovered/Resolved]
  - Oesophageal spasm [Not Recovered/Not Resolved]
  - Fear [Recovered/Resolved]
